FAERS Safety Report 5536953-8 (Version None)
Quarter: 2007Q4

REPORT INFORMATION
  Report Type: 
  Country: None (occurrence: None)
  Receive Date: 20071207
  Receipt Date: 20071127
  Transmission Date: 20080405
  Serious: Yes (Hospitalization)
  Sender: FDA-Public Use
  Company Number: FR-JNJFOC-20071110811

PATIENT
  Age: 56 Year
  Sex: Female
  Weight: 103 kg

DRUGS (12)
  1. REMICADE [Suspect]
     Indication: RHEUMATOID ARTHRITIS
     Route: 042
  2. METHOTREXATE [Concomitant]
     Indication: RHEUMATOID ARTHRITIS
  3. SPECIAFOLDINE [Concomitant]
     Indication: RHEUMATOID ARTHRITIS
  4. ACTONEL [Concomitant]
  5. CALCIUM [Concomitant]
  6. KARDEGIC [Concomitant]
  7. RAMIPRIL [Concomitant]
  8. AERIUS [Concomitant]
  9. RIFINAT [Concomitant]
     Indication: TUBERCULOSIS TEST POSITIVE
  10. VITAMIN B-12 [Concomitant]
  11. BISOPROLOL FUMARATE AND HYDROCHLOROTHIAZIDE [Concomitant]
  12. PREDNISONE TAB [Concomitant]

REACTIONS (1)
  - SCIATICA [None]
